FAERS Safety Report 20795414 (Version 2)
Quarter: 2025Q2

REPORT INFORMATION
  Report Type: Spontaneous
  Country: ES (occurrence: ES)
  Receive Date: 20220506
  Receipt Date: 20250620
  Transmission Date: 20250716
  Serious: Yes (Hospitalization, Other)
  Sender: PFIZER
  Company Number: None

PATIENT
  Age: 16 Year
  Sex: Female

DRUGS (3)
  1. LORAZEPAM [Suspect]
     Active Substance: LORAZEPAM
     Indication: Suicide attempt
     Dosage: UNK UNK, 1X/DAY (3 G, 1 TOTAL)
     Route: 048
     Dates: start: 20220311, end: 20220311
  2. IBUPROFEN [Suspect]
     Active Substance: IBUPROFEN
     Indication: Suicide attempt
     Dosage: UNK UNK, 1X/DAY (16 G, 1 TOTAL)
     Route: 048
     Dates: start: 20220311, end: 20220311
  3. ACETAMINOPHEN [Suspect]
     Active Substance: ACETAMINOPHEN
     Indication: Suicide attempt
     Dosage: UNK UNK, 1X/DAY (30 G, 1 TOTAL)
     Route: 048
     Dates: start: 20220311, end: 20220311

REACTIONS (4)
  - Rhabdomyolysis [Recovered/Resolved]
  - Hypertransaminasaemia [Recovered/Resolved]
  - Intentional overdose [Recovered/Resolved]
  - Suicide attempt [Unknown]

NARRATIVE: CASE EVENT DATE: 20220311
